FAERS Safety Report 10511520 (Version 2)
Quarter: 2015Q2

REPORT INFORMATION
  Report Type: Spontaneous
  Country: US (occurrence: US)
  Receive Date: 20141010
  Receipt Date: 20150630
  Transmission Date: 20150821
  Serious: Yes (Hospitalization)
  Sender: FDA-Public Use
  Company Number: US-BAYER-2014-149911

PATIENT
  Age: 42 Year
  Sex: Female

DRUGS (1)
  1. MIRENA [Suspect]
     Active Substance: LEVONORGESTREL
     Indication: CONTRACEPTION
     Dosage: 20 MCG/24HR, CONT
     Route: 015
     Dates: start: 2009, end: 20130108

REACTIONS (8)
  - Emotional distress [None]
  - Uterine scar [None]
  - Embedded device [None]
  - Injury [None]
  - Abdominal pain lower [None]
  - Anxiety [None]
  - Stress [None]
  - Depression [None]

NARRATIVE: CASE EVENT DATE: 2012
